FAERS Safety Report 16316149 (Version 7)
Quarter: 2020Q3

REPORT INFORMATION
  Report Type: Spontaneous
  Country: US (occurrence: US)
  Receive Date: 20190515
  Receipt Date: 20200807
  Transmission Date: 20201102
  Serious: No
  Sender: FDA-Public Use
  Company Number: US-SA-2019SA127757

PATIENT

DRUGS (9)
  1. VITAMIN B12 [Concomitant]
     Active Substance: CYANOCOBALAMIN
     Dosage: UNK
  2. COQ 10 [Concomitant]
     Active Substance: UBIDECARENONE
     Dosage: UNK
  3. MINOCYCLINE HCL [Concomitant]
     Active Substance: MINOCYCLINE HYDROCHLORIDE
     Dosage: UNK
  4. LISINOPRIL. [Concomitant]
     Active Substance: LISINOPRIL
     Dosage: POWDER
  5. OMEGA 3 6 9 COMPLEX [Concomitant]
     Dosage: UNK
  6. DUPIXENT [Suspect]
     Active Substance: DUPILUMAB
     Indication: DERMATITIS ATOPIC
     Dosage: 600 MG, 1X
     Route: 058
     Dates: start: 2019, end: 2019
  7. DUPIXENT [Suspect]
     Active Substance: DUPILUMAB
     Indication: IDIOPATHIC URTICARIA
     Dosage: 300 MG, QOW
     Route: 058
     Dates: start: 20190206, end: 2019
  8. LECITHIN [Concomitant]
     Active Substance: LECITHIN
     Dosage: UNK
  9. XOLIAR [Suspect]
     Active Substance: OMALIZUMAB

REACTIONS (11)
  - Eyelids pruritus [Not Recovered/Not Resolved]
  - Drug hypersensitivity [Unknown]
  - Eye pruritus [Not Recovered/Not Resolved]
  - Product storage error [Unknown]
  - Product use in unapproved indication [Unknown]
  - Vision blurred [Not Recovered/Not Resolved]
  - Eyelid irritation [Not Recovered/Not Resolved]
  - Diplopia [Not Recovered/Not Resolved]
  - Dermatitis atopic [Unknown]
  - Eye irritation [Not Recovered/Not Resolved]
  - Pruritus [Unknown]

NARRATIVE: CASE EVENT DATE: 2019
